FAERS Safety Report 11616488 (Version 3)
Quarter: 2015Q4

REPORT INFORMATION
  Report Type: Spontaneous
  Country: CA (occurrence: CA)
  Receive Date: 20151009
  Receipt Date: 20151216
  Transmission Date: 20160304
  Serious: Yes (Other)
  Sender: FDA-Public Use
  Company Number: CA-ROCHE-1642324

PATIENT
  Age: 74 Year
  Sex: Female

DRUGS (3)
  1. PREDNISONE. [Concomitant]
     Active Substance: PREDNISONE
     Route: 065
     Dates: start: 20150922
  2. METHOTREXATE [Concomitant]
     Active Substance: METHOTREXATE
  3. ACTEMRA [Suspect]
     Active Substance: TOCILIZUMAB
     Indication: RHEUMATOID ARTHRITIS
     Route: 065

REACTIONS (20)
  - Post procedural infection [Unknown]
  - Back pain [Unknown]
  - Tenderness [Unknown]
  - Hepatotoxicity [Unknown]
  - Haematotoxicity [Unknown]
  - Haemoglobin decreased [Unknown]
  - Mean cell haemoglobin concentration decreased [Unknown]
  - Synovitis [Unknown]
  - Cough [Unknown]
  - Neutrophil count decreased [Unknown]
  - Musculoskeletal disorder [Unknown]
  - Oedema peripheral [Unknown]
  - Paraesthesia [Unknown]
  - Drug ineffective [Unknown]
  - Red cell distribution width increased [Unknown]
  - Arthropathy [Unknown]
  - Joint swelling [Unknown]
  - Blood cholesterol increased [Unknown]
  - Pain [Unknown]
  - Swelling [Not Recovered/Not Resolved]
